FAERS Safety Report 12195225 (Version 1)
Quarter: 2016Q1

REPORT INFORMATION
  Report Type: Report from Study
  Country: JP (occurrence: JP)
  Receive Date: 20160321
  Receipt Date: 20160321
  Transmission Date: 20160526
  Serious: Yes (Death, Life-Threatening, Other)
  Sender: FDA-Public Use
  Company Number: JP-ROCHE-1728666

PATIENT
  Age: 67 Year
  Sex: Male

DRUGS (4)
  1. PEMETREXED [Suspect]
     Active Substance: PEMETREXED
     Indication: NON-SMALL CELL LUNG CANCER
     Dosage: DOSAGE IS UNCERTAIN. ?TWO COURSES
     Route: 041
     Dates: start: 20151029, end: 20160225
  2. VANCOMYCIN [Concomitant]
     Active Substance: VANCOMYCIN
  3. BEVACIZUMAB [Suspect]
     Active Substance: BEVACIZUMAB
     Indication: NON-SMALL CELL LUNG CANCER
     Dosage: DOSAGE IS UNCERTAIN. ?TWO COURSES
     Route: 041
     Dates: start: 20151029, end: 20160225
  4. CISPLATIN. [Suspect]
     Active Substance: CISPLATIN
     Indication: NON-SMALL CELL LUNG CANCER
     Dosage: DOSAGE IS UNCERTAIN. ?TWO COURSES
     Route: 041
     Dates: start: 20151029, end: 20160225

REACTIONS (6)
  - Rhabdomyolysis [Fatal]
  - Upper respiratory tract infection [Fatal]
  - Disseminated intravascular coagulation [Fatal]
  - Bone marrow failure [Unknown]
  - Influenza [Unknown]
  - Pneumonia [Unknown]

NARRATIVE: CASE EVENT DATE: 201603
